FAERS Safety Report 16349930 (Version 1)
Quarter: 2019Q2

REPORT INFORMATION
  Report Type: Spontaneous
  Country: US (occurrence: US)
  Receive Date: 20190417
  Receipt Date: 20190417
  Transmission Date: 20190711
  Serious: Yes (Hospitalization)
  Sender: FDA-Public Use
  Company Number: None

PATIENT
  Age: 65 Year
  Sex: Male
  Weight: 64.73 kg

DRUGS (1)
  1. WARFARIN [Suspect]
     Active Substance: WARFARIN
     Indication: PULMONARY EMBOLISM
     Dates: start: 20180811, end: 20190210

REACTIONS (5)
  - Prothrombin time prolonged [None]
  - Toxicologic test abnormal [None]
  - International normalised ratio increased [None]
  - Drug interaction [None]
  - Gastric haemorrhage [None]

NARRATIVE: CASE EVENT DATE: 20190210
